FAERS Safety Report 23415233 (Version 1)
Quarter: 2024Q1

REPORT INFORMATION
  Report Type: Spontaneous
  Country: CA (occurrence: CA)
  Receive Date: 20240118
  Receipt Date: 20240118
  Transmission Date: 20240410
  Serious: Yes (Other)
  Sender: FDA-Public Use
  Company Number: CA-SUN PHARMACEUTICAL INDUSTRIES LTD-2024R1-427058

PATIENT
  Age: 2 Decade
  Sex: Male

DRUGS (2)
  1. QUETIAPINE [Suspect]
     Active Substance: QUETIAPINE
     Indication: Bipolar disorder
     Dosage: 25-100 MILLIGRAM,
     Route: 048
  2. ARIPIPRAZOLE [Suspect]
     Active Substance: ARIPIPRAZOLE
     Indication: Bipolar disorder
     Route: 065

REACTIONS (6)
  - Condition aggravated [Unknown]
  - Libido decreased [Unknown]
  - Sedation [Not Recovered/Not Resolved]
  - Apathy [Unknown]
  - Depressed mood [Unknown]
  - Off label use [Unknown]
